FAERS Safety Report 5922660-6 (Version None)
Quarter: 2008Q3

REPORT INFORMATION
  Report Type: 
  Country: None (occurrence: None)
  Receive Date: 20080909
  Receipt Date: 20080317
  Transmission Date: 20090109
  Serious: Yes (Death, Hospitalization)
  Sender: FDA-Public Use
  Company Number: 163-20785-07020368 (1)

PATIENT
  Age: 86 Year
  Sex: Female

DRUGS (5)
  1. THALOMID [Suspect]
     Indication: MYELODYSPLASTIC SYNDROME
     Dosage: QHS, ORAL
     Route: 048
     Dates: start: 20060914, end: 20061101
  2. PREDNISONE [Suspect]
     Indication: MULTIPLE MYELOMA
     Dosage: 60 MG, DAILY X 7 DAYS/MONTH, ORAL
     Route: 048
     Dates: start: 20060914
  3. COUMADIN [Concomitant]
  4. LOPRESSOR [Concomitant]
  5. LASIX [Concomitant]

REACTIONS (5)
  - BLOOD POTASSIUM DECREASED [None]
  - DEATH [None]
  - HYPOTENSION [None]
  - NODAL ARRHYTHMIA [None]
  - TACHYCARDIA [None]
